FAERS Safety Report 19220586 (Version 1)
Quarter: 2021Q2

REPORT INFORMATION
  Report Type: Spontaneous
  Country: CN (occurrence: CN)
  Receive Date: 20210506
  Receipt Date: 20210506
  Transmission Date: 20210717
  Serious: Yes (Other)
  Sender: FDA-Public Use
  Company Number: CN-SA-2021SA137241

PATIENT
  Age: 42 Year
  Sex: Male

DRUGS (2)
  1. LANTUS [Suspect]
     Active Substance: INSULIN GLARGINE
     Dosage: 12 IU, QD
     Route: 058
     Dates: start: 20210418, end: 20210418
  2. LANTUS [Suspect]
     Active Substance: INSULIN GLARGINE
     Indication: DIABETES MELLITUS
     Dosage: 1014 IU, EVERY NIGHT
     Route: 058
     Dates: start: 20210329

REACTIONS (3)
  - Chills [Recovering/Resolving]
  - Hyperpyrexia [Recovering/Resolving]
  - Nausea [Recovering/Resolving]

NARRATIVE: CASE EVENT DATE: 20210418
